FAERS Safety Report 21208313 (Version 6)
Quarter: 2025Q1

REPORT INFORMATION
  Report Type: Report from Study
  Country: IN (occurrence: IN)
  Receive Date: 20220812
  Receipt Date: 20250330
  Transmission Date: 20250409
  Serious: Yes (Hospitalization, Other)
  Sender: NOVARTIS
  Company Number: IN-NOVARTISPH-NVSC2021IN202712

PATIENT
  Age: 69 Year
  Sex: Female

DRUGS (8)
  1. RIBOCICLIB [Suspect]
     Active Substance: RIBOCICLIB
     Indication: Breast cancer metastatic
     Dosage: 400 MG, QD
     Route: 048
     Dates: start: 20190918, end: 20210815
  2. RIBOCICLIB [Suspect]
     Active Substance: RIBOCICLIB
     Indication: Hormone receptor positive HER2 negative breast cancer
     Dosage: 600 MG, QD
     Route: 048
     Dates: start: 20190918
  3. RIBOCICLIB [Suspect]
     Active Substance: RIBOCICLIB
     Dosage: 600 MG, QD
     Route: 048
     Dates: start: 20191118
  4. RIBOCICLIB [Suspect]
     Active Substance: RIBOCICLIB
     Dosage: 600 MG, QD (DOSE INCREASED)
     Route: 065
     Dates: start: 20210818
  5. RIBOCICLIB [Suspect]
     Active Substance: RIBOCICLIB
     Route: 048
  6. RIBOCICLIB [Suspect]
     Active Substance: RIBOCICLIB
     Dosage: 600 MG, QD
     Route: 048
     Dates: start: 202209
  7. LETROZOLE [Suspect]
     Active Substance: LETROZOLE
     Indication: Hormone receptor positive HER2 negative breast cancer
     Dosage: 600 MG, QD
     Route: 065
  8. EXEMESTANE [Concomitant]
     Active Substance: EXEMESTANE
     Indication: Product used for unknown indication
     Route: 065

REACTIONS (16)
  - Eastern Cooperative Oncology Group performance status worsened [Not Recovered/Not Resolved]
  - Breast mass [Not Recovered/Not Resolved]
  - Cerebral atrophy [Unknown]
  - Breast cancer metastatic [Unknown]
  - Malignant neoplasm progression [Unknown]
  - Cataract [Unknown]
  - Visual impairment [Unknown]
  - Gliosis [Unknown]
  - Hemiplegia [Unknown]
  - Drug ineffective [Unknown]
  - Blood urea abnormal [Unknown]
  - Cerebral ventricle dilatation [Unknown]
  - Osteosclerosis [Unknown]
  - Chest pain [Not Recovered/Not Resolved]
  - Skin ulcer [Unknown]
  - Haemoglobin abnormal [Unknown]

NARRATIVE: CASE EVENT DATE: 20210813
